FAERS Safety Report 14689368 (Version 1)
Quarter: 2018Q1

REPORT INFORMATION
  Report Type: Spontaneous
  Country: US (occurrence: US)
  Receive Date: 20180328
  Receipt Date: 20180328
  Transmission Date: 20180509
  Serious: Yes (Other)
  Sender: FDA-Public Use
  Company Number: US-AMGEN-USASP2018039619

PATIENT
  Age: 64 Year
  Sex: Female

DRUGS (2)
  1. PROLIA [Suspect]
     Active Substance: DENOSUMAB
     Indication: OSTEOARTHRITIS
  2. PROLIA [Suspect]
     Active Substance: DENOSUMAB
     Indication: SPINAL OSTEOARTHRITIS
     Dosage: UNK, Q6MO
     Route: 065
     Dates: start: 2016

REACTIONS (3)
  - Nasopharyngitis [Unknown]
  - Off label use [Unknown]
  - Breast cancer female [Unknown]

NARRATIVE: CASE EVENT DATE: 201803
